FAERS Safety Report 7199767-1 (Version None)
Quarter: 2010Q4

REPORT INFORMATION
  Report Type: 
  Country: None (occurrence: None)
  Receive Date: 20101228
  Receipt Date: 20101217
  Transmission Date: 20110411
  Serious: Yes (Death, Other)
  Sender: FDA-Public Use
  Company Number: US-ROCHE-638462

PATIENT
  Sex: Female
  Weight: 108.9 kg

DRUGS (6)
  1. PEGINTERFERON ALFA-2A [Suspect]
     Route: 058
     Dates: start: 20090101
  2. PEGINTERFERON ALFA-2A [Suspect]
     Dosage: LAST DOSE PRIOR TO SAE: 11 MAY 2009
     Route: 058
     Dates: start: 20090202
  3. RIBAVIRIN [Suspect]
     Dosage: DOSAGE FORM: PILLS LAST DOSE PRIOR TO SAE WAS 11 MAY 2009.
     Route: 048
     Dates: start: 20090202, end: 20090501
  4. PROCRIT [Concomitant]
     Dosage: TDD: 40000 UNITS
     Dates: start: 20090316, end: 20090612
  5. NEUPOGEN [Concomitant]
     Dates: start: 20090316, end: 20090612
  6. NOREPINEPHRINE BITARTRATE [Concomitant]
     Dates: start: 20090612, end: 20090612

REACTIONS (3)
  - ARTERIAL RUPTURE [None]
  - HAEMORRHAGE INTRACRANIAL [None]
  - PLATELET COUNT DECREASED [None]
